FAERS Safety Report 25036903 (Version 2)
Quarter: 2025Q1

REPORT INFORMATION
  Report Type: Report from Study
  Country: US (occurrence: US)
  Receive Date: 20250304
  Receipt Date: 20250331
  Transmission Date: 20250409
  Serious: Yes (Other)
  Sender: GILEAD
  Company Number: US-GILEAD-2025-0705902

PATIENT
  Age: 92 Year
  Sex: Female

DRUGS (3)
  1. AMBRISENTAN [Suspect]
     Active Substance: AMBRISENTAN
     Indication: Pulmonary hypertension
     Dosage: 10 MG, QD
     Route: 048
     Dates: start: 20220513
  2. ADEMPAS [Concomitant]
     Active Substance: RIOCIGUAT
  3. TYVASO DPI [Concomitant]
     Active Substance: TREPROSTINIL

REACTIONS (6)
  - Pneumonia [Unknown]
  - Chest pain [Unknown]
  - Pain [Unknown]
  - Illness [Unknown]
  - Malaise [Unknown]
  - Dry mouth [Unknown]

NARRATIVE: CASE EVENT DATE: 20250224
